FAERS Safety Report 9833504 (Version 3)
Quarter: 2014Q1

REPORT INFORMATION
  Report Type: Report from Study
  Country: US (occurrence: US)
  Receive Date: 20140122
  Receipt Date: 20140305
  Transmission Date: 20141002
  Serious: Yes (Life-Threatening, Hospitalization)
  Sender: FDA-Public Use
  Company Number: US-ROCHE-1334439

PATIENT
  Age: 60 Year
  Sex: Female
  Weight: 45 kg

DRUGS (13)
  1. RITUXAN [Suspect]
     Indication: RHEUMATOID ARTHRITIS
     Route: 042
     Dates: start: 20130915, end: 20130915
  2. RITUXAN [Suspect]
     Route: 042
     Dates: start: 201301
  3. ACTEMRA [Suspect]
     Indication: RHEUMATOID ARTHRITIS
     Route: 065
     Dates: start: 201201, end: 201211
  4. ACTEMRA [Suspect]
     Route: 065
     Dates: start: 20121115, end: 20121115
  5. ASPIRIN [Concomitant]
     Indication: CORONARY ARTERY DISEASE
     Route: 048
     Dates: start: 20120615
  6. ASPIRIN [Concomitant]
     Indication: MYOCARDIAL INFARCTION
  7. NAPROSYN [Concomitant]
     Indication: RHEUMATOID ARTHRITIS
     Route: 048
     Dates: start: 20130115
  8. OMEPRAZOLE [Concomitant]
     Route: 048
     Dates: start: 20130115
  9. CLOPIDOGREL [Concomitant]
     Indication: MYOCARDIAL INFARCTION
     Route: 048
     Dates: start: 20130115
  10. CYCLOSPORINE [Concomitant]
     Indication: RHEUMATOID ARTHRITIS
  11. METHOTREXATE [Concomitant]
     Indication: RHEUMATOID ARTHRITIS
  12. PREDNISOLONE [Concomitant]
     Indication: MYOCARDIAL INFARCTION
     Dosage: 5 MG/5 ML
     Route: 048
     Dates: start: 19711015
  13. ATORVASTATIN [Concomitant]
     Route: 048
     Dates: start: 20130115

REACTIONS (3)
  - Palpitations [Unknown]
  - Myocardial infarction [Unknown]
  - Blood cholesterol increased [Unknown]
